FAERS Safety Report 5306829-X (Version None)
Quarter: 2007Q2

REPORT INFORMATION
  Report Type: 
  Country: None (occurrence: None)
  Receive Date: 20070420
  Receipt Date: 20070420
  Transmission Date: 20071010
  Serious: No
  Sender: FDA-Public Use
  Company Number: None

PATIENT
  Age: 67 Year
  Sex: Male

DRUGS (2)
  1. HEPARIN SODIUM [Suspect]
     Indication: CAROTID ENDARTERECTOMY
     Dosage: 20,000 UNITS  IV
     Route: 042
     Dates: start: 20070322
  2. HEPARIN SODIUM [Suspect]

REACTIONS (2)
  - PROCEDURAL COMPLICATION [None]
  - PROTHROMBIN TIME ABNORMAL [None]
